FAERS Safety Report 9686152 (Version 2)
Quarter: 2014Q1

REPORT INFORMATION
  Report Type: Report from Study
  Country: DE (occurrence: DE)
  Receive Date: 20131113
  Receipt Date: 20140206
  Transmission Date: 20141002
  Serious: Yes (Hospitalization)
  Sender: FDA-Public Use
  Company Number: DE-ROCHE-1299624

PATIENT
  Age: 65 Year
  Sex: Female
  Weight: 98 kg

DRUGS (6)
  1. RITUXIMAB [Suspect]
     Indication: RHEUMATOID ARTHRITIS
     Route: 042
     Dates: start: 20130122
  2. RITUXIMAB [Suspect]
     Dosage: NEW CYCLE
     Route: 042
     Dates: start: 20140203
  3. PREDNISOLONE [Suspect]
     Indication: PRODUCT USED FOR UNKNOWN INDICATION
     Route: 048
     Dates: start: 1987
  4. METHOTREXATE [Suspect]
     Indication: PRODUCT USED FOR UNKNOWN INDICATION
     Route: 048
     Dates: start: 1995
  5. TOREM [Concomitant]
     Indication: HYPERTENSION
     Route: 048
  6. OXYCODON [Concomitant]
     Indication: PAIN
     Dosage: 1 TO 2-3 WEEKS
     Route: 048
     Dates: start: 201309

REACTIONS (3)
  - Gastritis [Recovered/Resolved]
  - Rheumatoid arthritis [Unknown]
  - Back pain [Recovered/Resolved]
